FAERS Safety Report 14241314 (Version 2)
Quarter: 2018Q1

REPORT INFORMATION
  Report Type: Report from Study
  Country: US (occurrence: US)
  Receive Date: 20171130
  Receipt Date: 20180116
  Transmission Date: 20180508
  Serious: Yes (Other)
  Sender: FDA-Public Use
  Company Number: PHEH2017US038314

PATIENT
  Sex: Female
  Weight: 77.11 kg

DRUGS (1)
  1. COSENTYX [Suspect]
     Active Substance: SECUKINUMAB
     Indication: PSORIASIS
     Dosage: 300 MG, QMO
     Route: 058

REACTIONS (6)
  - Pulmonary mass [Unknown]
  - Renal cyst [Unknown]
  - Proteinuria [Unknown]
  - Nasal polyps [Unknown]
  - Inappropriate schedule of drug administration [Unknown]
  - Lacrimation increased [Unknown]
